FAERS Safety Report 23132790 (Version 1)
Quarter: 2023Q4

REPORT INFORMATION
  Report Type: Spontaneous
  Country: US (occurrence: US)
  Receive Date: 20231101
  Receipt Date: 20231101
  Transmission Date: 20240109
  Serious: No
  Sender: FDA-Public Use
  Company Number: US-SANDOZ-SDZ2023US049059

PATIENT
  Sex: Female

DRUGS (1)
  1. TAFLUPROST [Suspect]
     Active Substance: TAFLUPROST
     Indication: Product used for unknown indication
     Dosage: 15MCG/1ML, ONCE EACH EYE
     Route: 047
     Dates: start: 20231027

REACTIONS (4)
  - Eye pain [Unknown]
  - Pruritus [Unknown]
  - Lacrimation increased [Unknown]
  - Headache [Unknown]
